FAERS Safety Report 22104275 (Version 1)
Quarter: 2023Q1

REPORT INFORMATION
  Report Type: Spontaneous
  Country: US (occurrence: None)
  Receive Date: 20230315
  Receipt Date: 20230315
  Transmission Date: 20230418
  Serious: Yes (unspecified)
  Sender: FDA-Public Use
  Company Number: None

PATIENT
  Age: 22 Year
  Sex: Male
  Weight: 99.78 kg

DRUGS (1)
  1. ISOVUE 370 [Suspect]
     Active Substance: IOPAMIDOL

REACTIONS (4)
  - Cough [None]
  - Pruritus [None]
  - Contrast media reaction [None]
  - Sensation of foreign body [None]

NARRATIVE: CASE EVENT DATE: 20230310
